FAERS Safety Report 18577495 (Version 10)
Quarter: 2022Q1

REPORT INFORMATION
  Report Type: Report from Study
  Country: FR (occurrence: FR)
  Receive Date: 20201203
  Receipt Date: 20220324
  Transmission Date: 20220424
  Serious: Yes (Other)
  Sender: FDA-Public Use
  Company Number: FR-ABBVIE-20K-056-3675291-00

PATIENT
  Age: 71 Year
  Sex: Male
  Weight: 75.3 kg

DRUGS (4)
  1. CARBIDOPA\LEVODOPA [Suspect]
     Active Substance: CARBIDOPA\LEVODOPA
     Indication: Parkinson^s disease
     Route: 050
     Dates: start: 201809
  2. CARBIDOPA\LEVODOPA [Suspect]
     Active Substance: CARBIDOPA\LEVODOPA
  3. BENSERAZIDE HYDROCHLORIDE\LEVODOPA [Concomitant]
     Active Substance: BENSERAZIDE HYDROCHLORIDE\LEVODOPA
     Indication: Product used for unknown indication
  4. MEGAREAL [Concomitant]
     Indication: Product used for unknown indication
     Dosage: 450 ML

REACTIONS (10)
  - Weight decreased [Recovered/Resolved]
  - Weight decreased [Recovered/Resolved]
  - Abnormal loss of weight [Recovered/Resolved]
  - Weight decreased [Unknown]
  - Dysphagia [Unknown]
  - Constipation [Unknown]
  - Parkinson^s disease [Unknown]
  - Abdominal distension [Unknown]
  - Pneumonia [Unknown]
  - Unevaluable event [Unknown]

NARRATIVE: CASE EVENT DATE: 20200801
